FAERS Safety Report 18091378 (Version 4)
Quarter: 2020Q3

REPORT INFORMATION
  Report Type: Spontaneous
  Country: US (occurrence: US)
  Receive Date: 20200721
  Receipt Date: 20200811
  Transmission Date: 20201103
  Serious: Yes (Hospitalization)
  Sender: FDA-Public Use
  Company Number: FDA-CDER-CTU-2020-67699

PATIENT
  Sex: Female

DRUGS (1)
  1. NERVEFIX [HOMEOPATHIC] [Suspect]
     Active Substance: HOMEOPATHICS
     Route: 048

REACTIONS (2)
  - Oesophageal pain [None]
  - Throat irritation [None]

NARRATIVE: CASE EVENT DATE: 20200704
